FAERS Safety Report 8201330-8 (Version None)
Quarter: 2012Q1

REPORT INFORMATION
  Report Type: 
  Country: None (occurrence: None)
  Receive Date: 20120312
  Receipt Date: 20120305
  Transmission Date: 20120608
  Serious: Yes (Other)
  Sender: FDA-Public Use
  Company Number: PHHY2012FR014828

PATIENT
  Sex: Female
  Weight: 42.5 kg

DRUGS (8)
  1. PLAVIX [Concomitant]
     Dosage: 75 MG, UNK
  2. GLUCIDION [Concomitant]
     Dosage: UNK UKN, UNK
  3. CALCIUM W/COLECALCIFEROL [Concomitant]
     Dosage: UNK UKN, UNK
  4. GALANTAMINE HYDROBROMIDE [Concomitant]
     Dosage: 24 MG, UNK
  5. ACETAMINOPHEN [Concomitant]
     Dosage: 500 MG, UNK
  6. ESCITALOPRAM [Concomitant]
     Dosage: UNK UKN, UNK
  7. PRAVASTATIN [Concomitant]
     Dosage: 20 MG, UNK
  8. ZOLEDRONOC ACID [Suspect]
     Indication: OSTEOPOROSIS
     Dosage: 5 MG, UNK
     Route: 042
     Dates: start: 20120214

REACTIONS (2)
  - VASCULAR RUPTURE [None]
  - INFUSION SITE EXTRAVASATION [None]
